FAERS Safety Report 9714485 (Version 1)
Quarter: 2013Q4

REPORT INFORMATION
  Report Type: Spontaneous
  Country: US (occurrence: US)
  Receive Date: 20131126
  Receipt Date: 20131126
  Transmission Date: 20140711
  Serious: No
  Sender: FDA-Public Use
  Company Number: US-BIOGENIDEC-2013BI085596

PATIENT
  Sex: Female

DRUGS (9)
  1. TECFIDERA [Suspect]
     Indication: MULTIPLE SCLEROSIS
  2. TECFIDERA [Suspect]
     Indication: MULTIPLE SCLEROSIS
     Route: 048
     Dates: start: 20130620
  3. FISH OIL [Concomitant]
     Indication: PRODUCT USED FOR UNKNOWN INDICATION
  4. WELLBUTRIN [Concomitant]
     Indication: PRODUCT USED FOR UNKNOWN INDICATION
  5. VITAMIN D [Concomitant]
     Indication: PRODUCT USED FOR UNKNOWN INDICATION
  6. DEPLIN [Concomitant]
     Indication: PRODUCT USED FOR UNKNOWN INDICATION
  7. AVONEX [Concomitant]
     Route: 030
     Dates: start: 20120601
  8. AVONEX [Concomitant]
     Route: 030
     Dates: start: 20120629, end: 20130509
  9. AVONEX [Concomitant]
     Route: 030

REACTIONS (2)
  - Flushing [Unknown]
  - Hot flush [Unknown]
